FAERS Safety Report 9527536 (Version 1)
Quarter: 2013Q3

REPORT INFORMATION
  Report Type: Spontaneous
  Country: US (occurrence: None)
  Receive Date: 20130913
  Receipt Date: 20130913
  Transmission Date: 20140515
  Serious: Yes (Disabling)
  Sender: FDA-Public Use
  Company Number: None

PATIENT
  Age: 12 Year
  Sex: Female
  Weight: 35.38 kg

DRUGS (1)
  1. INCRELEX [Suspect]
     Indication: GROWTH RETARDATION
     Dosage: 1 INJECTION  ONCE DAILY  GIVEN INTO/UNDER THE SKIN
     Route: 058

REACTIONS (1)
  - Product quality issue [None]
